FAERS Safety Report 15779256 (Version 2)
Quarter: 2019Q2

REPORT INFORMATION
  Report Type: Spontaneous
  Country: US (occurrence: US)
  Receive Date: 20190101
  Receipt Date: 20190513
  Transmission Date: 20190711
  Serious: No
  Sender: FDA-Public Use
  Company Number: US-PFIZER INC-2018536779

PATIENT
  Age: 35 Year
  Sex: Female

DRUGS (6)
  1. NEULASTA [Concomitant]
     Active Substance: PEGFILGRASTIM
  2. DOCETAXEL. [Suspect]
     Active Substance: DOCETAXEL
     Indication: BREAST CANCER FEMALE
     Dosage: 145 MG, CYCLIC (6 CYCLES, EVERY THREE WEEKS)
     Dates: start: 20110606, end: 20110927
  3. TAXOTERE [Suspect]
     Active Substance: DOCETAXEL
     Indication: BREAST CANCER FEMALE
     Dosage: 145 MG, CYCLIC (6 CYCLES, EVERY THREE WEEKS)
     Dates: start: 20110606, end: 20110927
  4. TAXOTERE [Suspect]
     Active Substance: DOCETAXEL
     Dosage: 115 MG, CYCLIC (6 CYCLES, EVERY THREE WEEKS)
     Dates: start: 20110606, end: 20110927
  5. DOCETAXEL. [Suspect]
     Active Substance: DOCETAXEL
     Dosage: 115 MG, CYCLIC (6 CYCLES, EVERY THREE WEEKS)
     Dates: start: 20110606, end: 20110927
  6. PARAPLATIN [Concomitant]
     Active Substance: CARBOPLATIN

REACTIONS (6)
  - Madarosis [Not Recovered/Not Resolved]
  - Hair disorder [Not Recovered/Not Resolved]
  - Mental disorder [Unknown]
  - Alopecia [Not Recovered/Not Resolved]
  - Hair texture abnormal [Not Recovered/Not Resolved]
  - Hair colour changes [Not Recovered/Not Resolved]

NARRATIVE: CASE EVENT DATE: 201203
